FAERS Safety Report 23407011 (Version 1)
Quarter: 2024Q1

REPORT INFORMATION
  Report Type: Spontaneous
  Country: None (occurrence: US)
  Receive Date: 20240116
  Receipt Date: 20240116
  Transmission Date: 20240410
  Serious: Yes (Hospitalization)
  Sender: FDA-Public Use
  Company Number: US-Mission Pharmacal Company-2151332

PATIENT
  Age: 38 Year
  Sex: Female

DRUGS (2)
  1. THIOLA EC [Suspect]
     Active Substance: TIOPRONIN
     Indication: Cystinuria
     Route: 048
     Dates: start: 20210717
  2. CALCIUM 1200 [Concomitant]

REACTIONS (2)
  - Drug ineffective [Unknown]
  - Kidney infection [Unknown]
